FAERS Safety Report 12326781 (Version 1)
Quarter: 2016Q2

REPORT INFORMATION
  Report Type: Spontaneous
  Country: US (occurrence: US)
  Receive Date: 20160503
  Receipt Date: 20160503
  Transmission Date: 20160815
  Serious: No
  Sender: FDA-Public Use
  Company Number: US-PFIZER INC-2016199762

PATIENT
  Age: 27 Year
  Sex: Male
  Weight: 93 kg

DRUGS (4)
  1. CLOMIPHENE CITRATE. [Concomitant]
     Active Substance: CLOMIPHENE CITRATE
     Indication: HYPOTHALAMO-PITUITARY DISORDER
     Dosage: 25 MG, 1X/DAY
     Dates: start: 201510
  2. HYDROCORTISONE. [Concomitant]
     Active Substance: HYDROCORTISONE
     Indication: HYPOTHALAMO-PITUITARY DISORDER
     Dosage: 10 MG, UNK
     Dates: start: 201510
  3. GENOTROPIN [Suspect]
     Active Substance: SOMATROPIN
     Indication: HYPOTHALAMO-PITUITARY DISORDER
     Dosage: 0.6 MG, 1X/DAY IN THIGH OR STOMACH
     Dates: start: 201602
  4. VITAMIN D2 [Concomitant]
     Active Substance: ERGOCALCIFEROL
     Indication: HYPOTHALAMO-PITUITARY DISORDER
     Dosage: 1.25 MG, WEEKLY

REACTIONS (1)
  - Back pain [Not Recovered/Not Resolved]

NARRATIVE: CASE EVENT DATE: 201603
